FAERS Safety Report 16944751 (Version 1)
Quarter: 2019Q4

REPORT INFORMATION
  Report Type: Spontaneous
  Country: US (occurrence: US)
  Receive Date: 20191022
  Receipt Date: 20191022
  Transmission Date: 20200122
  Serious: Yes (Death)
  Sender: FDA-Public Use
  Company Number: US-BIO PRODUCTS LABORATORY LTD-2075911

PATIENT
  Age: 48 Year
  Sex: Male

DRUGS (5)
  1. GENERIC IVIG [Suspect]
     Active Substance: HUMAN IMMUNOGLOBULIN G
     Indication: HAEMOPHAGOCYTIC LYMPHOHISTIOCYTOSIS
     Route: 042
  2. BROAD SPECTRUM ANTIBIOTICS [Concomitant]
  3. ORAL STEROIDS [Concomitant]
     Active Substance: UNSPECIFIED INGREDIENT
  4. DEXAMETHASONE. [Concomitant]
     Active Substance: DEXAMETHASONE
  5. ETOPOSIDE. [Concomitant]
     Active Substance: ETOPOSIDE

REACTIONS (2)
  - Off label use [Fatal]
  - Disease progression [Fatal]
